FAERS Safety Report 9003696 (Version 1)
Quarter: 2013Q1

REPORT INFORMATION
  Report Type: Spontaneous
  Country: US (occurrence: US)
  Receive Date: 20130108
  Receipt Date: 20130108
  Transmission Date: 20140127
  Serious: No
  Sender: FDA-Public Use
  Company Number: US-GLAXOSMITHKLINE-A0962731A

PATIENT
  Age: 58 Year
  Sex: Female

DRUGS (2)
  1. LOVAZA [Suspect]
     Indication: BLOOD TRIGLYCERIDES INCREASED
     Dosage: 1G THREE TIMES PER DAY
     Route: 048
     Dates: start: 20110609, end: 20110611
  2. UNKNOWN MEDICATION [Concomitant]

REACTIONS (5)
  - Eructation [Unknown]
  - Vomiting [Unknown]
  - Abdominal discomfort [Unknown]
  - Decreased appetite [Unknown]
  - Dysgeusia [Unknown]
